FAERS Safety Report 8766813 (Version 1)
Quarter: 2012Q4

REPORT INFORMATION
  Report Type: 
  Country: JP (occurrence: JP)
  Receive Date: 20120904
  Receipt Date: 20120904
  Transmission Date: 20130627
  Serious: Yes (Other)
  Sender: FDA-Public Use
  Company Number: JP-JNJFOC-20120813107

PATIENT
  Age: 85 Year
  Sex: Female

DRUGS (1)
  1. RISPERDAL [Suspect]
     Indication: AGITATION
     Dosage: less than 1 mg/dose on an as-needed basis
     Route: 048
     Dates: start: 201208

REACTIONS (1)
  - Anuria [Recovering/Resolving]
